FAERS Safety Report 17734732 (Version 1)
Quarter: 2020Q2

REPORT INFORMATION
  Report Type: Spontaneous
  Country: US (occurrence: US)
  Receive Date: 20200501
  Receipt Date: 20200501
  Transmission Date: 20200714
  Serious: Yes (Hospitalization, Other)
  Sender: FDA-Public Use
  Company Number: US-GLAXOSMITHKLINE-US2020AMR073735

PATIENT
  Sex: Female

DRUGS (3)
  1. CYMBALTA [Concomitant]
     Active Substance: DULOXETINE HYDROCHLORIDE
     Indication: PRODUCT USED FOR UNKNOWN INDICATION
     Dosage: UNK
     Route: 065
  2. NIVESTIM [Suspect]
     Active Substance: FILGRASTIM
     Indication: BLOOD COUNT ABNORMAL
     Dosage: UNK
     Route: 065
     Dates: start: 202003
  3. VALACICLOVIR [Suspect]
     Active Substance: VALACYCLOVIR HYDROCHLORIDE
     Indication: HERPES ZOSTER
     Dosage: UNK
     Route: 065

REACTIONS (11)
  - Respiratory disorder [Recovering/Resolving]
  - Diarrhoea [Recovering/Resolving]
  - Dehydration [Recovering/Resolving]
  - Complications of bone marrow transplant [Unknown]
  - Plasma cell myeloma [Unknown]
  - Nausea [Recovering/Resolving]
  - Platelet count decreased [Unknown]
  - Bone marrow transplant [Unknown]
  - Neoplasm malignant [Unknown]
  - Herpes zoster [Unknown]
  - Blood test abnormal [Unknown]

NARRATIVE: CASE EVENT DATE: 20200323
